FAERS Safety Report 12592503 (Version 1)
Quarter: 2016Q3

REPORT INFORMATION
  Report Type: Report from Study
  Country: JP (occurrence: JP)
  Receive Date: 20160726
  Receipt Date: 20160726
  Transmission Date: 20161109
  Serious: Yes (Hospitalization, Other)
  Sender: FDA-Public Use
  Company Number: JP-ASTELLAS-2009JP005556

PATIENT
  Age: 25 Year
  Sex: Female
  Weight: 46 kg

DRUGS (106)
  1. PL GRAN. [Concomitant]
     Active Substance: UNSPECIFIED INGREDIENT
     Route: 048
     Dates: start: 201001
  2. PL GRAN. [Concomitant]
     Active Substance: UNSPECIFIED INGREDIENT
     Route: 048
     Dates: start: 2010
  3. TALION                             /01587402/ [Concomitant]
     Active Substance: BEPOTASTINE
     Route: 048
     Dates: start: 200901
  4. MEDICON                            /00048102/ [Concomitant]
     Active Substance: DEXTROMETHORPHAN HYDROBROMIDE
     Route: 048
     Dates: start: 200812
  5. MEDICON                            /00048102/ [Concomitant]
     Active Substance: DEXTROMETHORPHAN HYDROBROMIDE
     Route: 048
     Dates: start: 2009
  6. MEDICON                            /00048102/ [Concomitant]
     Active Substance: DEXTROMETHORPHAN HYDROBROMIDE
     Route: 048
     Dates: start: 201001
  7. STROCAIN                           /00130301/ [Concomitant]
     Route: 048
     Dates: start: 2010
  8. MEDROL [Suspect]
     Active Substance: METHYLPREDNISOLONE
     Route: 048
     Dates: start: 20081220, end: 20100824
  9. MEDROL [Suspect]
     Active Substance: METHYLPREDNISOLONE
     Route: 048
     Dates: start: 20100825, end: 20110303
  10. MEDROL [Suspect]
     Active Substance: METHYLPREDNISOLONE
     Route: 048
     Dates: start: 20151222
  11. EPADEL-S [Concomitant]
     Active Substance: ICOSAPENT ETHYL
     Route: 048
     Dates: start: 20080708
  12. BONALON [Concomitant]
     Active Substance: ALENDRONATE SODIUM
     Route: 048
     Dates: end: 20100331
  13. GLAKAY [Concomitant]
     Active Substance: MENATETRENONE
     Indication: OSTEOPOROSIS
     Route: 048
     Dates: start: 20080714, end: 20130308
  14. LOXONIN [Concomitant]
     Active Substance: LOXOPROFEN SODIUM
     Indication: HEADACHE
     Route: 048
     Dates: start: 2008
  15. LOXONIN [Concomitant]
     Active Substance: LOXOPROFEN SODIUM
     Route: 048
     Dates: start: 20110209
  16. PL GRAN. [Concomitant]
     Active Substance: UNSPECIFIED INGREDIENT
     Route: 048
     Dates: start: 200812
  17. PL GRAN. [Concomitant]
     Active Substance: UNSPECIFIED INGREDIENT
     Route: 048
     Dates: start: 200904
  18. PL GRAN. [Concomitant]
     Active Substance: UNSPECIFIED INGREDIENT
     Route: 048
     Dates: start: 200911
  19. TALION                             /01587402/ [Concomitant]
     Active Substance: BEPOTASTINE
     Route: 048
     Dates: start: 200910
  20. MEDICON                            /00048102/ [Concomitant]
     Active Substance: DEXTROMETHORPHAN HYDROBROMIDE
     Route: 048
     Dates: start: 2010
  21. CEFZON [Concomitant]
     Active Substance: CEFDINIR
     Route: 048
     Dates: start: 201001
  22. CEFZON [Concomitant]
     Active Substance: CEFDINIR
     Route: 048
     Dates: start: 201005
  23. ASTOMIN [Concomitant]
     Active Substance: DIMEMORFAN
     Indication: PHARYNGITIS
     Route: 048
     Dates: start: 200904
  24. CIPROXAN                           /00697202/ [Concomitant]
     Active Substance: CIPROFLOXACIN
     Indication: GASTROENTERITIS
     Route: 065
     Dates: start: 2010
  25. MEDROL [Suspect]
     Active Substance: METHYLPREDNISOLONE
     Indication: LUPUS NEPHRITIS
     Route: 048
     Dates: end: 20070824
  26. GASTER [Concomitant]
     Active Substance: FAMOTIDINE
     Indication: PROPHYLAXIS
     Route: 048
     Dates: end: 20100330
  27. LOXONIN [Concomitant]
     Active Substance: LOXOPROFEN SODIUM
     Indication: UPPER RESPIRATORY TRACT INFLAMMATION
     Route: 048
     Dates: start: 200709
  28. LOXONIN [Concomitant]
     Active Substance: LOXOPROFEN SODIUM
     Indication: ABDOMINAL PAIN UPPER
     Route: 048
     Dates: start: 2008
  29. TALION                             /01587402/ [Concomitant]
     Active Substance: BEPOTASTINE
     Route: 048
     Dates: start: 201001
  30. MEDICON                            /00048102/ [Concomitant]
     Active Substance: DEXTROMETHORPHAN HYDROBROMIDE
     Indication: PHARYNGITIS
     Route: 048
     Dates: start: 2008
  31. MEDICON                            /00048102/ [Concomitant]
     Active Substance: DEXTROMETHORPHAN HYDROBROMIDE
     Route: 048
     Dates: start: 200910
  32. MEDICON                            /00048102/ [Concomitant]
     Active Substance: DEXTROMETHORPHAN HYDROBROMIDE
     Route: 048
     Dates: start: 2011
  33. CEFZON [Concomitant]
     Active Substance: CEFDINIR
     Route: 048
     Dates: start: 200910
  34. CEFZON [Concomitant]
     Active Substance: CEFDINIR
     Route: 048
     Dates: start: 200911
  35. STROCAIN                           /00130301/ [Concomitant]
     Indication: ABDOMINAL PAIN UPPER
     Route: 048
     Dates: start: 2008
  36. GENTACIN [Concomitant]
     Active Substance: GENTAMICIN SULFATE
     Indication: SKIN ULCER
     Dosage: UNK, UNK, UNKNOWN FREQ.
     Route: 065
  37. METHYCOBAL [Concomitant]
     Active Substance: METHYLCOBALAMIN
     Indication: HEADACHE
     Route: 065
     Dates: start: 20110209
  38. TACROLIMUS. [Suspect]
     Active Substance: TACROLIMUS
     Route: 048
     Dates: start: 20080526
  39. MEDROL [Suspect]
     Active Substance: METHYLPREDNISOLONE
     Route: 048
     Dates: start: 20110304, end: 20110317
  40. LOXONIN [Concomitant]
     Active Substance: LOXOPROFEN SODIUM
     Indication: SYNOVIAL CYST
     Route: 048
  41. PL GRAN. [Concomitant]
     Active Substance: UNSPECIFIED INGREDIENT
     Route: 048
     Dates: start: 200901
  42. PL GRAN. [Concomitant]
     Active Substance: UNSPECIFIED INGREDIENT
     Route: 048
     Dates: start: 200909
  43. CEFZON [Concomitant]
     Active Substance: CEFDINIR
     Indication: UPPER RESPIRATORY TRACT INFLAMMATION
     Route: 048
     Dates: start: 2008
  44. BIOFERMIN R [Concomitant]
     Active Substance: BACILLUS SUBTILIS\LACTOBACILLUS ACIDOPHILUS\STREPTOCOCCUS FAECAIS
     Indication: GASTROENTERITIS
     Route: 048
     Dates: start: 2010
  45. ALFAROL [Concomitant]
     Active Substance: ALFACALCIDOL
     Indication: OSTEOPOROSIS
     Dosage: 0.5 ?G, ONCE DAILY
     Route: 048
     Dates: end: 20111202
  46. BONALON [Concomitant]
     Active Substance: ALENDRONATE SODIUM
     Indication: OSTEOPOROSIS
     Route: 048
     Dates: start: 20071110
  47. BONALON [Concomitant]
     Active Substance: ALENDRONATE SODIUM
     Route: 048
     Dates: start: 20100825, end: 20111026
  48. SELBEX [Concomitant]
     Active Substance: TEPRENONE
     Indication: PROPHYLAXIS
     Route: 048
     Dates: start: 20140110
  49. TAKEPRON [Concomitant]
     Active Substance: LANSOPRAZOLE
     Route: 048
     Dates: start: 20150417
  50. PL GRAN. [Concomitant]
     Active Substance: UNSPECIFIED INGREDIENT
     Indication: UPPER RESPIRATORY TRACT INFLAMMATION
     Route: 048
     Dates: start: 200709
  51. PL GRAN. [Concomitant]
     Active Substance: UNSPECIFIED INGREDIENT
     Route: 048
     Dates: start: 2008
  52. PL GRAN. [Concomitant]
     Active Substance: UNSPECIFIED INGREDIENT
     Route: 048
     Dates: start: 2011, end: 2011
  53. TALION                             /01587402/ [Concomitant]
     Active Substance: BEPOTASTINE
     Indication: PHARYNGITIS
     Route: 048
     Dates: start: 2008
  54. TALION                             /01587402/ [Concomitant]
     Active Substance: BEPOTASTINE
     Route: 048
     Dates: start: 2009
  55. MEDICON                            /00048102/ [Concomitant]
     Active Substance: DEXTROMETHORPHAN HYDROBROMIDE
     Route: 048
     Dates: start: 200901
  56. MEDICON                            /00048102/ [Concomitant]
     Active Substance: DEXTROMETHORPHAN HYDROBROMIDE
     Route: 048
     Dates: start: 200911
  57. MEDICON                            /00048102/ [Concomitant]
     Active Substance: DEXTROMETHORPHAN HYDROBROMIDE
     Route: 048
     Dates: start: 201005
  58. CEFZON [Concomitant]
     Active Substance: CEFDINIR
     Indication: PHARYNGITIS
     Route: 048
     Dates: start: 2008
  59. CEFZON [Concomitant]
     Active Substance: CEFDINIR
     Route: 048
     Dates: start: 200812
  60. CEFZON [Concomitant]
     Active Substance: CEFDINIR
     Route: 048
     Dates: start: 200901
  61. CEFZON [Concomitant]
     Active Substance: CEFDINIR
     Route: 048
     Dates: start: 200904
  62. CEFZON [Concomitant]
     Active Substance: CEFDINIR
     Route: 048
     Dates: start: 200909
  63. U-PASTA [Concomitant]
     Indication: INFECTED SKIN ULCER
     Dosage: UNK, UNK, UNKNOWN FREQ.
     Route: 061
     Dates: start: 2010
  64. METHYCOBAL [Concomitant]
     Active Substance: METHYLCOBALAMIN
     Indication: NEUROPATHY PERIPHERAL
     Route: 065
     Dates: start: 2010
  65. MEDROL [Suspect]
     Active Substance: METHYLPREDNISOLONE
     Route: 048
     Dates: start: 20070915, end: 20071012
  66. MEDROL [Suspect]
     Active Substance: METHYLPREDNISOLONE
     Route: 048
     Dates: start: 20110318, end: 20140904
  67. ENDOXAN                            /00021101/ [Concomitant]
     Active Substance: CYCLOPHOSPHAMIDE
     Route: 065
     Dates: start: 20071121, end: 20071121
  68. PANVITAN [Concomitant]
     Indication: PROPHYLAXIS
     Route: 048
  69. NU-LOTAN [Concomitant]
     Active Substance: LOSARTAN POTASSIUM
     Indication: HYPERTENSION
     Route: 048
     Dates: start: 20070818
  70. SELBEX [Concomitant]
     Active Substance: TEPRENONE
     Indication: ABDOMINAL PAIN UPPER
     Route: 048
     Dates: start: 20080926, end: 20130308
  71. TAKEPRON [Concomitant]
     Active Substance: LANSOPRAZOLE
     Indication: PROPHYLAXIS
     Route: 048
     Dates: start: 20100331, end: 20150416
  72. PL GRAN. [Concomitant]
     Active Substance: UNSPECIFIED INGREDIENT
     Route: 048
     Dates: start: 2009
  73. PL GRAN. [Concomitant]
     Active Substance: UNSPECIFIED INGREDIENT
     Route: 048
     Dates: start: 200910
  74. TALION                             /01587402/ [Concomitant]
     Active Substance: BEPOTASTINE
     Route: 048
     Dates: start: 201005
  75. MEDICON                            /00048102/ [Concomitant]
     Active Substance: DEXTROMETHORPHAN HYDROBROMIDE
     Indication: UPPER RESPIRATORY TRACT INFLAMMATION
     Route: 048
     Dates: start: 2008
  76. FIBLAST                            /00801901/ [Concomitant]
     Indication: SKIN ULCER
     Dosage: UNK, UNK, UNKNOWN FREQ.
     Route: 061
  77. MEDROL [Suspect]
     Active Substance: METHYLPREDNISOLONE
     Route: 048
     Dates: start: 20110304, end: 20110317
  78. MEDROL [Suspect]
     Active Substance: METHYLPREDNISOLONE
     Route: 048
     Dates: start: 20140905, end: 20151221
  79. PERSANTIN [Concomitant]
     Active Substance: DIPYRIDAMOLE
     Indication: PROPHYLAXIS
     Route: 048
     Dates: end: 20090804
  80. BAYASPIRIN [Concomitant]
     Active Substance: ASPIRIN
     Indication: PROPHYLAXIS
     Route: 048
  81. LOXONIN [Concomitant]
     Active Substance: LOXOPROFEN SODIUM
     Indication: OSTEOARTHRITIS
     Route: 048
     Dates: start: 200901
  82. PL GRAN. [Concomitant]
     Active Substance: UNSPECIFIED INGREDIENT
     Route: 048
     Dates: start: 201005
  83. TALION                             /01587402/ [Concomitant]
     Active Substance: BEPOTASTINE
     Route: 048
     Dates: start: 2008
  84. TALION                             /01587402/ [Concomitant]
     Active Substance: BEPOTASTINE
     Route: 048
     Dates: start: 200904
  85. TALION                             /01587402/ [Concomitant]
     Active Substance: BEPOTASTINE
     Route: 048
     Dates: start: 200911
  86. TALION                             /01587402/ [Concomitant]
     Active Substance: BEPOTASTINE
     Route: 048
     Dates: start: 2010
  87. TALION                             /01587402/ [Concomitant]
     Active Substance: BEPOTASTINE
     Route: 048
     Dates: start: 2011, end: 2011
  88. MEDICON                            /00048102/ [Concomitant]
     Active Substance: DEXTROMETHORPHAN HYDROBROMIDE
     Route: 048
     Dates: start: 200909
  89. CRAVIT [Concomitant]
     Active Substance: LEVOFLOXACIN
     Indication: PHARYNGITIS
     Route: 065
     Dates: start: 2011
  90. TACROLIMUS. [Suspect]
     Active Substance: TACROLIMUS
     Indication: LUPUS NEPHRITIS
     Route: 048
     Dates: start: 20070822, end: 20080525
  91. MEDROL [Suspect]
     Active Substance: METHYLPREDNISOLONE
     Route: 048
     Dates: start: 20070825, end: 20070914
  92. MEDROL [Suspect]
     Active Substance: METHYLPREDNISOLONE
     Route: 048
     Dates: start: 20070915, end: 20071012
  93. MEDROL [Suspect]
     Active Substance: METHYLPREDNISOLONE
     Route: 048
     Dates: start: 20071013, end: 20081219
  94. ENDOXAN                            /00021101/ [Concomitant]
     Active Substance: CYCLOPHOSPHAMIDE
     Indication: LUPUS NEPHRITIS
     Route: 065
     Dates: start: 20070921, end: 20070921
  95. EPADEL-S [Concomitant]
     Active Substance: ICOSAPENT ETHYL
     Indication: PROPHYLAXIS
     Route: 048
     Dates: end: 20080707
  96. BENET [Concomitant]
     Active Substance: RISEDRONATE SODIUM
     Indication: PRODUCT USED FOR UNKNOWN INDICATION
     Route: 048
     Dates: end: 20071109
  97. LOXONIN [Concomitant]
     Active Substance: LOXOPROFEN SODIUM
     Indication: MENISCUS INJURY
     Route: 048
     Dates: start: 2009
  98. PL GRAN. [Concomitant]
     Active Substance: UNSPECIFIED INGREDIENT
     Indication: PHARYNGITIS
     Route: 048
     Dates: start: 2008
  99. TALION                             /01587402/ [Concomitant]
     Active Substance: BEPOTASTINE
     Indication: UPPER RESPIRATORY TRACT INFLAMMATION
     Route: 048
     Dates: start: 200709
  100. TALION                             /01587402/ [Concomitant]
     Active Substance: BEPOTASTINE
     Route: 048
     Dates: start: 200812
  101. TALION                             /01587402/ [Concomitant]
     Active Substance: BEPOTASTINE
     Route: 048
     Dates: start: 200909
  102. ISODINE [Concomitant]
     Active Substance: POVIDONE-IODINE
     Indication: UPPER RESPIRATORY TRACT INFLAMMATION
     Dosage: UNK, UNK, UNKNOWN FREQ.
     Route: 061
     Dates: start: 200709
  103. CEFZON [Concomitant]
     Active Substance: CEFDINIR
     Route: 048
     Dates: start: 2009
  104. CEFZON [Concomitant]
     Active Substance: CEFDINIR
     Route: 048
     Dates: start: 2010
  105. BUSCOPAN [Concomitant]
     Active Substance: BUTYLSCOPOLAMINE BROMIDE
     Indication: ABDOMINAL PAIN UPPER
     Dosage: UNK UNK, UNKNOWN FREQ.
     Route: 065
     Dates: start: 2010
  106. ADOAIR [Concomitant]
     Active Substance: FLUTICASONE PROPIONATE\SALMETEROL XINAFOATE
     Indication: COUGH
     Dosage: UNK UNK, UNKNOWN FREQ.
     Route: 065
     Dates: start: 2010

REACTIONS (29)
  - Osteoarthritis [Unknown]
  - Cough [Recovering/Resolving]
  - Upper respiratory tract inflammation [Recovered/Resolved]
  - Pharyngitis [Recovering/Resolving]
  - Gastroenteritis [Recovering/Resolving]
  - Synovial cyst [Unknown]
  - Urinary tract infection [Recovered/Resolved]
  - Glaucoma [Recovering/Resolving]
  - Osteoarthritis [Recovering/Resolving]
  - Neuropathy peripheral [Recovering/Resolving]
  - Pharyngitis [Recovering/Resolving]
  - Ota^s naevus [Recovering/Resolving]
  - Infected skin ulcer [Recovering/Resolving]
  - Plantar fasciitis [Unknown]
  - Cough [Recovering/Resolving]
  - Calculus urinary [Recovered/Resolved]
  - Ovarian cyst [Unknown]
  - Spondylolisthesis [Unknown]
  - Abdominal pain upper [Recovering/Resolving]
  - Abdominal pain upper [Recovering/Resolving]
  - Leiomyoma [Unknown]
  - Headache [Recovering/Resolving]
  - Skin ulcer [Recovering/Resolving]
  - Meniscus injury [Unknown]
  - Nephrolithiasis [Not Recovered/Not Resolved]
  - Spinal compression fracture [Unknown]
  - Foot fracture [Recovering/Resolving]
  - Lower limb fracture [Unknown]
  - Ota^s naevus [Recovered/Resolved]

NARRATIVE: CASE EVENT DATE: 20070914
